FAERS Safety Report 9916507 (Version 2)
Quarter: 2014Q2

REPORT INFORMATION
  Report Type: Spontaneous
  Country: GB (occurrence: None)
  Receive Date: 20140219
  Receipt Date: 20140415
  Transmission Date: 20141212
  Serious: Yes (Life-Threatening, Hospitalization)
  Sender: FDA-Public Use
  Company Number: 2184874

PATIENT
  Age: 67 Year
  Sex: Male
  Weight: 75.29 kg

DRUGS (11)
  1. CARBOPLATIN [Suspect]
     Indication: LUNG ADENOCARCINOMA
     Dosage: 490 MG INTRAVENOUS (NOT OTHERWISE SPECIFIED)
     Route: 042
     Dates: start: 20130110
  2. PARACETAMOL [Suspect]
     Indication: PAIN
     Route: 048
     Dates: start: 20140110
  3. PEMETREXED [Suspect]
     Indication: PRODUCT USED FOR UNKNOWN INDICATION
     Dates: start: 20140110
  4. OXYCODONE HYDROCHLORIDE [Concomitant]
  5. SIMVASTATIN [Concomitant]
  6. LANSOPRAZOLE [Concomitant]
  7. ALENDRONATE [Concomitant]
  8. DEXAMETHASONE [Concomitant]
  9. CYCLIZINE [Concomitant]
  10. CHLORHEXIDINE GLUCONATE [Concomitant]
  11. NYSTATIN [Concomitant]

REACTIONS (16)
  - Renal failure acute [None]
  - Jaundice [None]
  - Acidosis [None]
  - Overdose [None]
  - Diarrhoea [None]
  - Vomiting [None]
  - Pain [None]
  - Blood sodium decreased [None]
  - Blood potassium increased [None]
  - Blood albumin decreased [None]
  - Haemoglobin decreased [None]
  - Blood calcium decreased [None]
  - Sepsis [None]
  - Dialysis [None]
  - Neutropenia [None]
  - Liver injury [None]
